FAERS Safety Report 9643531 (Version 1)
Quarter: 2013Q4

REPORT INFORMATION
  Report Type: Spontaneous
  Country: NL (occurrence: NL)
  Receive Date: 20131024
  Receipt Date: 20131024
  Transmission Date: 20140711
  Serious: Yes (Hospitalization)
  Sender: FDA-Public Use
  Company Number: NL-PFIZER INC-2013301201

PATIENT
  Age: 84 Year
  Sex: Female

DRUGS (2)
  1. LYRICA [Suspect]
     Indication: PAIN
     Dosage: 75 MG, 2X/DAY
     Dates: start: 20130927, end: 20130928
  2. OXYCODONE [Concomitant]
     Indication: PAIN
     Dosage: 10 MG, 2X/DAY
     Dates: start: 20130917

REACTIONS (6)
  - Delirium [Unknown]
  - Muscle contractions involuntary [Unknown]
  - Muscular weakness [Unknown]
  - Pain [Unknown]
  - Confusional state [Unknown]
  - Restlessness [Unknown]
